FAERS Safety Report 15597531 (Version 1)
Quarter: 2018Q4

REPORT INFORMATION
  Report Type: Spontaneous
  Country: ZA (occurrence: ZA)
  Receive Date: 20181108
  Receipt Date: 20181108
  Transmission Date: 20190205
  Serious: Yes (Hospitalization)
  Sender: FDA-Public Use
  Company Number: ZA-PROVELL PHARMACEUTICALS-2058576

PATIENT
  Sex: Female

DRUGS (6)
  1. MYPROCAM [Suspect]
     Active Substance: CYCLOBENZAPRINE HYDROCHLORIDE
  2. ADCO-ZOLPIDEM [Suspect]
     Active Substance: ZOLPIDEM TARTRATE
  3. EUTHYROX [Suspect]
     Active Substance: LEVOTHYROXINE SODIUM
     Indication: PRODUCT USED FOR UNKNOWN INDICATION
  4. CELEBREX [Suspect]
     Active Substance: CELECOXIB
  5. PREMARIN [Suspect]
     Active Substance: ESTROGENS, CONJUGATED
  6. SIMVASTATIN. [Suspect]
     Active Substance: SIMVASTATIN

REACTIONS (1)
  - Cervical vertebral fracture [Recovering/Resolving]
